FAERS Safety Report 25211286 (Version 1)
Quarter: 2025Q2

REPORT INFORMATION
  Report Type: Spontaneous
  Country: US (occurrence: US)
  Receive Date: 20250417
  Receipt Date: 20250417
  Transmission Date: 20250717
  Serious: No
  Sender: BAUSCH AND LOMB
  Company Number: US-BAUSCHBL-2025BNL006361

PATIENT
  Sex: Male

DRUGS (1)
  1. LATANOPROST [Suspect]
     Active Substance: LATANOPROST
     Indication: Intraocular pressure increased
     Route: 065
     Dates: start: 2023

REACTIONS (1)
  - Intraocular pressure increased [Unknown]
